FAERS Safety Report 13064461 (Version 1)
Quarter: 2016Q4

REPORT INFORMATION
  Report Type: Spontaneous
  Country: LK (occurrence: LK)
  Receive Date: 20161227
  Receipt Date: 20161227
  Transmission Date: 20170207
  Serious: Yes (Death, Hospitalization)
  Sender: FDA-Public Use
  Company Number: LK-GE HEALTHCARE MEDICAL DIAGNOSTICS-OMPQ-PR-1612S-2227

PATIENT
  Age: 50 Year
  Sex: Male
  Weight: 68 kg

DRUGS (7)
  1. ASPIRIN. [Concomitant]
     Active Substance: ASPIRIN
  2. STREPTOKINASE [Concomitant]
     Active Substance: STREPTOKINASE
  3. OMNIPAQUE [Suspect]
     Active Substance: IOHEXOL
     Indication: PRODUCT USED FOR UNKNOWN INDICATION
     Route: 042
     Dates: start: 201611, end: 201611
  4. CLOPIDOGREL [Concomitant]
     Active Substance: CLOPIDOGREL BISULFATE
  5. OMNIPAQUE [Suspect]
     Active Substance: IOHEXOL
     Indication: DIAGNOSTIC PROCEDURE
  6. HEPARIN [Concomitant]
     Active Substance: HEPARIN SODIUM
  7. ATORVASTATIN [Concomitant]
     Active Substance: ATORVASTATIN

REACTIONS (7)
  - Acute myocardial infarction [Fatal]
  - Left ventricular failure [Fatal]
  - Infection [Fatal]
  - Cardio-respiratory arrest [Fatal]
  - Hypotension [Recovered/Resolved]
  - Contrast media reaction [Fatal]
  - Acute kidney injury [Fatal]

NARRATIVE: CASE EVENT DATE: 201611
